FAERS Safety Report 25178505 (Version 1)
Quarter: 2025Q2

REPORT INFORMATION
  Report Type: Spontaneous
  Country: US (occurrence: US)
  Receive Date: 20250409
  Receipt Date: 20250409
  Transmission Date: 20250716
  Serious: Yes (Other)
  Sender: OTSUKA
  Company Number: US-MMM-Otsuka-5WX7SGQ6

PATIENT
  Sex: Female
  Weight: 54.43 kg

DRUGS (1)
  1. ABILIFY [Suspect]
     Active Substance: ARIPIPRAZOLE
     Indication: Bipolar disorder
     Dosage: 1 DF, BID (ONE TABLET IN THE MORNING AND ONE TABLET IN THE EVENING) FOR 1.5 YEAR
     Route: 048
     Dates: start: 2021, end: 2022

REACTIONS (2)
  - Parkinson^s disease [Not Recovered/Not Resolved]
  - Inappropriate schedule of product administration [Unknown]

NARRATIVE: CASE EVENT DATE: 20210101
